FAERS Safety Report 7654655-9 (Version None)
Quarter: 2011Q3

REPORT INFORMATION
  Report Type: 
  Country: None (occurrence: None)
  Receive Date: 20110804
  Receipt Date: 20110727
  Transmission Date: 20111222
  Serious: Yes (Hospitalization, Other)
  Sender: FDA-Public Use
  Company Number: SE-BRISTOL-MYERS SQUIBB COMPANY-15878796

PATIENT
  Age: 60 Year
  Sex: Male

DRUGS (5)
  1. METFORMIN HCL [Suspect]
     Indication: TYPE 2 DIABETES MELLITUS
  2. HEPARIN [Suspect]
  3. ASPIRIN [Suspect]
     Dosage: 1DF={100MG
  4. PLACEBO [Suspect]
     Indication: TYPE 2 DIABETES MELLITUS
     Dosage: INTERRUPTED ON 11JUL2011
     Dates: start: 20110414
  5. BLINDED: SAXAGLIPTIN [Suspect]
     Indication: TYPE 2 DIABETES MELLITUS
     Dosage: INTERRUPTED ON 11JUL2011
     Dates: start: 20110414

REACTIONS (5)
  - INGUINAL HERNIA [None]
  - PORTAL VEIN THROMBOSIS [None]
  - HAEMATURIA [None]
  - ASCITES [None]
  - PANCREATITIS ACUTE [None]
